FAERS Safety Report 13549247 (Version 1)
Quarter: 2017Q2

REPORT INFORMATION
  Report Type: Spontaneous
  Country: US (occurrence: US)
  Receive Date: 20170515
  Receipt Date: 20170515
  Transmission Date: 20170830
  Serious: No
  Sender: FDA-Public Use
  Company Number: None

PATIENT
  Age: 64 Year
  Sex: Female

DRUGS (1)
  1. PRALUENT [Suspect]
     Active Substance: ALIROCUMAB
     Dosage: ?          OTHER FREQUENCY:EVERY TWO WEEKS;?
     Route: 058

REACTIONS (1)
  - Muscle spasms [None]

NARRATIVE: CASE EVENT DATE: 20170512
